FAERS Safety Report 16482147 (Version 2)
Quarter: 2019Q3

REPORT INFORMATION
  Report Type: Report from Study
  Country: US (occurrence: US)
  Receive Date: 20190627
  Receipt Date: 20190809
  Transmission Date: 20191004
  Serious: No
  Sender: FDA-Public Use
  Company Number: US-SA-2019SA173315

PATIENT
  Age: 88 Year
  Sex: Female

DRUGS (5)
  1. DUPILUMAB [Suspect]
     Active Substance: DUPILUMAB
     Indication: PRURITUS
     Dosage: 600 MG, 1X
     Route: 058
     Dates: start: 20190614, end: 20190614
  2. DUPILUMAB [Suspect]
     Active Substance: DUPILUMAB
     Indication: SENSITIVE SKIN
     Dosage: 300 MG, QOW
     Route: 058
     Dates: start: 20190628
  3. TACROLIMUS. [Concomitant]
     Active Substance: TACROLIMUS
  4. DUPILUMAB [Suspect]
     Active Substance: DUPILUMAB
     Indication: DERMATITIS ATOPIC
  5. DERMED [KETOCONAZOLE] [Concomitant]

REACTIONS (6)
  - Drug ineffective [Not Recovered/Not Resolved]
  - Rash pruritic [Unknown]
  - Product use in unapproved indication [Unknown]
  - Pallor [Unknown]
  - Pruritus [Not Recovered/Not Resolved]
  - Condition aggravated [Not Recovered/Not Resolved]

NARRATIVE: CASE EVENT DATE: 201906
